FAERS Safety Report 19003177 (Version 1)
Quarter: 2021Q1

REPORT INFORMATION
  Report Type: Spontaneous
  Country: US (occurrence: US)
  Receive Date: 20210312
  Receipt Date: 20210312
  Transmission Date: 20210420
  Serious: No
  Sender: FDA-Public Use
  Company Number: US-PFIZER INC-2020401005

PATIENT
  Age: 78 Year
  Sex: Male

DRUGS (2)
  1. SUTENT [Suspect]
     Active Substance: SUNITINIB MALATE
     Indication: RENAL CANCER
     Dosage: 37.5 MG, CYCLIC [EVERY MORNING FOR 4 WEEKS ON AND 2 WEEKS OFF]/4 WEEKS ONE AND 2 WEEKS OFF
     Route: 048
  2. SUTENT [Suspect]
     Active Substance: SUNITINIB MALATE
     Dosage: 25 MG

REACTIONS (11)
  - Fluid intake reduced [Unknown]
  - Hyperphagia [Unknown]
  - Weight increased [Unknown]
  - Off label use [Unknown]
  - Memory impairment [Unknown]
  - Dry skin [Unknown]
  - Blood urine present [Recovered/Resolved]
  - Chromaturia [Unknown]
  - Neoplasm progression [Unknown]
  - Abdominal pain upper [Unknown]
  - Rash [Unknown]

NARRATIVE: CASE EVENT DATE: 202010
